FAERS Safety Report 7953103 (Version 7)
Quarter: 2012Q4

REPORT INFORMATION
  Report Type: 
  Country: JP (occurrence: JP)
  Receive Date: 20110520
  Receipt Date: 20120828
  Transmission Date: 20130627
  Serious: Yes (Death, Disabling, Other)
  Sender: FDA-Public Use
  Company Number: JP-JNJFOC-20110506753

PATIENT
  Age: 81 Year
  Sex: Female

DRUGS (11)
  1. RISPERDAL [Suspect]
     Indication: SCHIZOPHRENIA
     Route: 048
     Dates: start: 2011, end: 20110408
  2. SEROQUEL [Suspect]
     Indication: SCHIZOPHRENIA
     Route: 048
     Dates: start: 2011, end: 20110408
  3. UNKNOWN MEDICATION [Suspect]
     Indication: PRODUCT USED FOR UNKNOWN INDICATION
     Route: 065
  4. LASIX [Concomitant]
     Route: 065
     Dates: start: 20110421, end: 20110421
  5. LASIX [Concomitant]
     Route: 065
     Dates: start: 20110423, end: 20110423
  6. DIOVAN [Concomitant]
     Indication: HYPERTENSION
     Route: 048
     Dates: end: 20110413
  7. EXCEGRAN [Concomitant]
     Indication: CEREBRAL HAEMORRHAGE
     Route: 048
     Dates: end: 20110413
  8. UNASYN-S [Concomitant]
     Indication: PNEUMONIA
     Route: 042
     Dates: start: 20110329, end: 20110405
  9. ROCEPHIN [Concomitant]
     Indication: PNEUMONIA
     Route: 042
     Dates: start: 20110405, end: 20110413
  10. OMEPRAL [Concomitant]
     Route: 065
     Dates: start: 20110414, end: 20110421
  11. OMEPRAL [Concomitant]
     Route: 065
     Dates: start: 20110423, end: 20110423

REACTIONS (1)
  - Hypoglycaemia [Fatal]
